FAERS Safety Report 9604514 (Version 2)
Quarter: 2013Q4

REPORT INFORMATION
  Report Type: Report from Study
  Country: US (occurrence: US)
  Receive Date: 20131008
  Receipt Date: 20131008
  Transmission Date: 20140711
  Serious: Yes (Hospitalization)
  Sender: FDA-Public Use
  Company Number: US-ASTELLAS-2013US008957

PATIENT
  Sex: Female
  Weight: 82 kg

DRUGS (4)
  1. ERLOTINIB TABLET [Suspect]
     Indication: ADENOCARCINOMA PANCREAS
     Dosage: 100 MG, UID/QD
     Route: 048
     Dates: start: 20130731, end: 20130813
  2. ERLOTINIB TABLET [Suspect]
     Dosage: 100 MG, UID/QD
     Route: 048
     Dates: start: 20130828, end: 20130911
  3. GEMCITABINE HYDROCHLORIDE [Suspect]
     Indication: ADENOCARCINOMA PANCREAS
     Dosage: 1000 MG/M2, OVER 30 MIN Q WEEK FOR WKS 1-3
     Route: 042
     Dates: start: 20130731, end: 20130807
  4. GEMCITABINE HYDROCHLORIDE [Suspect]
     Dosage: 1000 MG/M2, OVER 30 MIN Q WEEK FOR WKS 1-3
     Route: 042
     Dates: start: 20130828, end: 20130904

REACTIONS (3)
  - Pseudocyst [Recovered/Resolved]
  - Pancreatitis [Recovered/Resolved]
  - Pancreatitis [Recovered/Resolved]
